FAERS Safety Report 4494253-1 (Version None)
Quarter: 2004Q4

REPORT INFORMATION
  Report Type: 
  Country: None (occurrence: None)
  Receive Date: 20041105
  Receipt Date: 20041020
  Transmission Date: 20050328
  Serious: Yes (Other)
  Sender: FDA-Public Use
  Company Number: PHBS2004GB14007

PATIENT
  Age: 29 Year
  Sex: Female

DRUGS (2)
  1. CLOZAPINE [Suspect]
     Route: 065
  2. CLOZAPINE [Suspect]
     Dosage: 300 MG/D
     Route: 065
     Dates: start: 19981101

REACTIONS (3)
  - CROHN'S DISEASE [None]
  - DIARRHOEA [None]
  - PERIANAL ABSCESS [None]
